FAERS Safety Report 12285006 (Version 2)
Quarter: 2016Q2

REPORT INFORMATION
  Report Type: Spontaneous
  Country: US (occurrence: US)
  Receive Date: 20160420
  Receipt Date: 20160421
  Transmission Date: 20160815
  Serious: Yes (Hospitalization)
  Sender: FDA-Public Use
  Company Number: US-JNJFOC-20160412449

PATIENT
  Sex: Female
  Weight: 61.24 kg

DRUGS (3)
  1. IMODIUM A-D [Suspect]
     Active Substance: LOPERAMIDE HYDROCHLORIDE
     Indication: DIARRHOEA
     Route: 048
  2. IMODIUM A-D [Suspect]
     Active Substance: LOPERAMIDE HYDROCHLORIDE
     Indication: DIARRHOEA
     Route: 048
  3. METOPROLOL. [Concomitant]
     Active Substance: METOPROLOL
     Dosage: INDICATION: HEART MEDICATION
     Route: 065
     Dates: start: 2005

REACTIONS (1)
  - Intestinal obstruction [Unknown]
